FAERS Safety Report 22613755 (Version 1)
Quarter: 2023Q2

REPORT INFORMATION
  Report Type: Spontaneous
  Country: US (occurrence: US)
  Receive Date: 20230619
  Receipt Date: 20230619
  Transmission Date: 20230722
  Serious: Yes (Other)
  Sender: FDA-Public Use
  Company Number: US-AMNEAL PHARMACEUTICALS-2023-AMRX-02076

PATIENT
  Age: 63 Year
  Sex: Female

DRUGS (1)
  1. PROPRANOLOL HYDROCHLORIDE [Suspect]
     Active Substance: PROPRANOLOL HYDROCHLORIDE
     Indication: Product used for unknown indication
     Dosage: 20 MILLIGRAM, QD
     Route: 048

REACTIONS (10)
  - Cerebrospinal fluid retention [Not Recovered/Not Resolved]
  - Panic attack [Not Recovered/Not Resolved]
  - Contusion [Not Recovered/Not Resolved]
  - Dysarthria [Not Recovered/Not Resolved]
  - Nervous system disorder [Not Recovered/Not Resolved]
  - Oedema [Not Recovered/Not Resolved]
  - Pain [Not Recovered/Not Resolved]
  - Hypertension [Not Recovered/Not Resolved]
  - Tremor [Not Recovered/Not Resolved]
  - Visual impairment [Not Recovered/Not Resolved]
